FAERS Safety Report 12517141 (Version 4)
Quarter: 2016Q4

REPORT INFORMATION
  Report Type: Spontaneous
  Country: US (occurrence: US)
  Receive Date: 20160630
  Receipt Date: 20161019
  Transmission Date: 20170207
  Serious: Yes (Hospitalization, Other)
  Sender: FDA-Public Use
  Company Number: US-PFIZER INC-2016296960

PATIENT
  Age: 82 Year
  Sex: Female

DRUGS (19)
  1. REVATIO [Suspect]
     Active Substance: SILDENAFIL CITRATE
     Indication: PULMONARY ARTERIAL HYPERTENSION
     Dosage: 20 MG, 3X/DAY
  2. ENALAPRIL MALEATE. [Concomitant]
     Active Substance: ENALAPRIL MALEATE
     Indication: BLOOD PRESSURE MEASUREMENT
     Dosage: 2.5 MG AM, 10 MG BEDTIME
  3. ULTRAM [Concomitant]
     Active Substance: TRAMADOL HYDROCHLORIDE
     Indication: BREAKTHROUGH PAIN
     Dosage: 50 MG; 3 DAILY AS NEEDED
  4. SUPER B COMPLEX WITH VITAMIN C [Concomitant]
     Dosage: UNK, 2X/DAY
  5. CALCIUM W/VITAMIN D [Concomitant]
     Active Substance: CALCIUM\VITAMIN D
     Dosage: 1000 MG, 1X/DAY
  6. RANITIDINE. [Concomitant]
     Active Substance: RANITIDINE
     Indication: GASTROOESOPHAGEAL REFLUX DISEASE
     Dosage: 150 MG, 2X/DAY
  7. FUROSEMIDE. [Concomitant]
     Active Substance: FUROSEMIDE
     Indication: FLUID RETENTION
     Dosage: 20 MG, 2X/DAY
  8. AMITRIPTYLENE [Concomitant]
     Active Substance: AMITRIPTYLINE
     Indication: NEUROPATHY PERIPHERAL
     Dosage: 100 MG, 1X/DAY (BEDTIME)
  9. COQ 10 [Concomitant]
     Active Substance: UBIDECARENONE
     Dosage: 100 MG, 1X/DAY
  10. SYNTHROID [Concomitant]
     Active Substance: LEVOTHYROXINE SODIUM
     Indication: THYROID DISORDER
     Dosage: 137 UG, 1X/DAY
  11. HYDROCODONE BITARTRATE AND ACETAMINOPHEN [Concomitant]
     Active Substance: ACETAMINOPHEN\HYDROCODONE BITARTRATE
     Indication: PAIN
     Dosage: 2 TABLETS (HYDROCODONE BITARTRATE 10/ACETAMINOPHEN 325), 3X/DAY
  12. HYDROCHLOROTHIAZIDE. [Concomitant]
     Active Substance: HYDROCHLOROTHIAZIDE
     Dosage: 12.5 MG, 1X/DAY
  13. LECITHIN [Concomitant]
     Active Substance: LECITHIN
     Dosage: 500 MG, 2X/DAY
  14. FISH OIL W/OMEGA-3 FATTY ACIDS [Concomitant]
     Active Substance: FISH OIL\OMEGA-3 FATTY ACIDS
     Dosage: FISH OIL: 1000 MG; OMEGA-3: 300 MG,2X/DAY
  15. OXYGEN. [Concomitant]
     Active Substance: OXYGEN
     Dosage: 4 LITERS, (24-7)
     Dates: start: 20070224
  16. ESTRADIOL. [Concomitant]
     Active Substance: ESTRADIOL
     Indication: BONE DENSITY ABNORMAL
     Dosage: 1 MG, ALTERNATE DAY
  17. AMARYL [Concomitant]
     Active Substance: GLIMEPIRIDE
     Indication: DIABETES MELLITUS
     Dosage: 1 MG, 2X/DAY (2 MG; 1/2 AM-1/2 PM)
  18. ALPRAZOLAM. [Concomitant]
     Active Substance: ALPRAZOLAM
     Indication: PAIN
     Dosage: 0.5 UNK, 4X/DAY
  19. GLUCOPHAGE [Concomitant]
     Active Substance: METFORMIN HYDROCHLORIDE
     Indication: DIABETES MELLITUS
     Dosage: 1000 MG, 2X/DAY

REACTIONS (3)
  - Lung disorder [Not Recovered/Not Resolved]
  - Carotid artery occlusion [Unknown]
  - Arterial disorder [Not Recovered/Not Resolved]
